FAERS Safety Report 5209534-3 (Version None)
Quarter: 2007Q1

REPORT INFORMATION
  Report Type: 
  Country: None (occurrence: None)
  Receive Date: 20070111
  Receipt Date: 20070102
  Transmission Date: 20070707
  Serious: Yes (Death, Hospitalization)
  Sender: FDA-Public Use
  Company Number: 2007AL000028

PATIENT
  Age: 66 Year
  Sex: Male

DRUGS (18)
  1. DIAZEPAM [Suspect]
     Dosage: 4 MG; QD; PO
     Route: 048
  2. ZOPICLONE [Concomitant]
  3. OXYNORM [Concomitant]
  4. OXYCONTIN [Concomitant]
  5. SALBUTAMOL [Concomitant]
  6. IPRATROPIUM BROMIDE [Concomitant]
  7. PARACETAMOL [Concomitant]
  8. DEXAMETHASONE [Concomitant]
  9. DOCUSATE [Concomitant]
  10. ZOPICLONE [Concomitant]
  11. CAFFEINE [Concomitant]
  12. WARFARIN SODIUM [Concomitant]
  13. ASPIRIN [Concomitant]
  14. NYSTATIN [Concomitant]
  15. HALOPERIDOL [Concomitant]
  16. CEFACLOR [Concomitant]
  17. OMEPRAZOLE [Concomitant]
  18. FUROSEMIDE [Concomitant]

REACTIONS (4)
  - CONFUSIONAL STATE [None]
  - HALLUCINATION [None]
  - INSOMNIA [None]
  - LOWER RESPIRATORY TRACT INFECTION [None]
